FAERS Safety Report 7800868-2 (Version None)
Quarter: 2011Q4

REPORT INFORMATION
  Report Type: 
  Country: None (occurrence: None)
  Receive Date: 20111006
  Receipt Date: 20110927
  Transmission Date: 20120403
  Serious: Yes (Death, Other)
  Sender: FDA-Public Use
  Company Number: US-MPIJNJ-2011-04596

PATIENT
  Age: 75 Year
  Sex: Male

DRUGS (17)
  1. RITUXIMAB [Suspect]
  2. MECHLORETHAMINE [Suspect]
  3. PROCARBAZINE HYDROCHLORIDE [Suspect]
  4. PREDNISONE [Suspect]
  5. DACARBAZINE [Suspect]
  6. PLATINOL [Suspect]
  7. ONCOVIN [Suspect]
  8. ETOPOSIDE [Suspect]
  9. GEMCITABINE HYDROCHLORIDE [Suspect]
  10. CARMUSTINE [Suspect]
  11. CYTARABINE [Suspect]
  12. MELPHALAN HYDROCHLORIDE [Suspect]
  13. ADRIAMYCIN PFS [Suspect]
  14. SOLU-MEDROL [Suspect]
  15. VELCADE [Suspect]
  16. CCNU [Suspect]
  17. IFOSFAMIDE [Suspect]

REACTIONS (2)
  - MYELODYSPLASTIC SYNDROME [None]
  - DEATH [None]
